FAERS Safety Report 19817336 (Version 1)
Quarter: 2021Q3

REPORT INFORMATION
  Report Type: Spontaneous
  Country: US (occurrence: US)
  Receive Date: 20210910
  Receipt Date: 20210910
  Transmission Date: 20211014
  Serious: No
  Sender: FDA-Public Use
  Company Number: US-PAIPHARMA-2021-US-002931

PATIENT
  Age: 72 Year
  Sex: Female
  Weight: 66.68 kg

DRUGS (1)
  1. LACTULOSE SOLUTION USP, AF [Suspect]
     Active Substance: LACTULOSE
     Indication: HEPATIC ENCEPHALOPATHY
     Dosage: 30 ML
     Route: 048
     Dates: start: 20210111

REACTIONS (1)
  - Diarrhoea [Recovered/Resolved]
